FAERS Safety Report 12844974 (Version 4)
Quarter: 2018Q4

REPORT INFORMATION
  Report Type: Spontaneous
  Country: US (occurrence: US)
  Receive Date: 20161013
  Receipt Date: 20181031
  Transmission Date: 20190204
  Serious: Yes (Other)
  Sender: FDA-Public Use
  Company Number: US-009507513-1609USA013393

PATIENT
  Sex: Female
  Weight: 67.57 kg

DRUGS (1)
  1. IMPLANON [Suspect]
     Active Substance: ETONOGESTREL
     Indication: CONTRACEPTION
     Dosage: 1 IMPLANT
     Route: 059
     Dates: start: 20101215, end: 20170120

REACTIONS (16)
  - Device deployment issue [Recovered/Resolved]
  - Menstrual disorder [Unknown]
  - Food allergy [Unknown]
  - Incorrect product administration duration [Recovered/Resolved]
  - Surgery [Recovered/Resolved]
  - Implant site pain [Unknown]
  - Complication associated with device [Recovered/Resolved]
  - High risk sexual behaviour [Unknown]
  - Drug abuse [Unknown]
  - Pruritus allergic [Unknown]
  - Seasonal allergy [Unknown]
  - Dermatitis allergic [Unknown]
  - Complication of device removal [Recovered/Resolved]
  - Limb mass [Unknown]
  - General anaesthesia [Recovered/Resolved]
  - Drug hypersensitivity [Unknown]

NARRATIVE: CASE EVENT DATE: 2013
